FAERS Safety Report 9468843 (Version 1)
Quarter: 2013Q3

REPORT INFORMATION
  Report Type: Spontaneous
  Country: US (occurrence: US)
  Receive Date: 20130821
  Receipt Date: 20130821
  Transmission Date: 20140515
  Serious: Yes (Death)
  Sender: FDA-Public Use
  Company Number: US-BAYER-2013-100003

PATIENT
  Sex: Female

DRUGS (1)
  1. CAMPHO-PHENIQUE ANTISEPTIC LIQUID [Suspect]
     Dosage: 1 DOSE, PRN
     Route: 048
     Dates: end: 1983

REACTIONS (2)
  - Death [Fatal]
  - Incorrect route of drug administration [None]
